FAERS Safety Report 9125514 (Version 2)
Quarter: 2013Q1

REPORT INFORMATION
  Report Type: Report from Study
  Country: GB (occurrence: GB)
  Receive Date: 20130227
  Receipt Date: 20130308
  Transmission Date: 20140127
  Serious: Yes (Hospitalization)
  Sender: FDA-Public Use
  Company Number: GB-GLAXOSMITHKLINE-B0870663A

PATIENT
  Age: 50 Year
  Sex: Male
  Weight: 107 kg

DRUGS (3)
  1. NELARABINE [Suspect]
     Indication: ACUTE LYMPHOCYTIC LEUKAEMIA
     Route: 042
     Dates: start: 20130206, end: 20130208
  2. MINOXIDIL [Concomitant]
     Dosage: 10MG PER DAY
     Route: 048
  3. FRUSEMIDE [Concomitant]
     Dosage: 80MG PER DAY
     Route: 048

REACTIONS (1)
  - Myositis [Not Recovered/Not Resolved]
